FAERS Safety Report 8983970 (Version 1)
Quarter: 2012Q4

REPORT INFORMATION
  Report Type: Spontaneous
  Country: US (occurrence: None)
  Receive Date: 20121218
  Receipt Date: 20121218
  Transmission Date: 20130627
  Serious: Yes (Life-Threatening, Hospitalization, Other)
  Sender: FDA-Public Use
  Company Number: None

PATIENT
  Age: 4 Year
  Sex: Male
  Weight: 15 kg

DRUGS (1)
  1. ONFI [Suspect]
     Route: 048
     Dates: start: 201208, end: 201211

REACTIONS (3)
  - Heart rate decreased [None]
  - Blood pressure decreased [None]
  - Hypothermia [None]
